FAERS Safety Report 16130051 (Version 1)
Quarter: 2019Q1

REPORT INFORMATION
  Report Type: Spontaneous
  Country: US (occurrence: US)
  Receive Date: 20190328
  Receipt Date: 20190328
  Transmission Date: 20190418
  Serious: Yes (Hospitalization)
  Sender: FDA-Public Use
  Company Number: US-INDIVIOR LIMITED-INDV-116448-2018

PATIENT
  Age: 31 Year
  Sex: Female

DRUGS (1)
  1. SUBLOCADE [Suspect]
     Active Substance: BUPRENORPHINE
     Indication: DRUG DEPENDENCE
     Dosage: 300 MG, QMO ( 2 INJECTIONS)
     Route: 058
     Dates: start: 20180726, end: 201809

REACTIONS (1)
  - Drug detoxification [Recovered/Resolved]

NARRATIVE: CASE EVENT DATE: 201809
